FAERS Safety Report 9080382 (Version 2)
Quarter: 2013Q1

REPORT INFORMATION
  Report Type: Report from Study
  Country: FR (occurrence: FR)
  Receive Date: 20130214
  Receipt Date: 20130214
  Transmission Date: 20140127
  Serious: Yes (Hospitalization)
  Sender: FDA-Public Use
  Company Number: PHHY2012FR110114

PATIENT
  Age: 74 Year
  Sex: Female
  Weight: 70 kg

DRUGS (9)
  1. ACLASTA [Suspect]
     Indication: OSTEOPOROSIS
     Dosage: UNK UKN, UNK
     Route: 042
     Dates: start: 201110
  2. ACLASTA [Suspect]
     Dosage: UNK UKN, UNK
     Route: 042
     Dates: start: 20121020
  3. FLUDEX [Concomitant]
     Dosage: UNK UKN, UNK
     Dates: start: 1990
  4. DETENSIEL [Concomitant]
     Dosage: UNK UKN, UNK
     Dates: start: 1990
  5. LEVOTHYROX [Concomitant]
     Indication: HYPOTHYROIDISM
     Dosage: 25 UG, UNK
     Dates: start: 1985
  6. CRESTOR [Concomitant]
     Dosage: UNK UKN, UNK
     Dates: start: 1990
  7. PARIET [Concomitant]
     Dosage: UNK UKN, UNK
  8. XANAX [Concomitant]
     Dosage: UNK UKN, UNK
     Dates: start: 2010
  9. DERMESTRIL [Concomitant]
     Dosage: UNK UKN, UNK
     Dates: end: 201111

REACTIONS (2)
  - Intervertebral disc disorder [Unknown]
  - Spinal osteoarthritis [Unknown]
